FAERS Safety Report 10443761 (Version 1)
Quarter: 2014Q3

REPORT INFORMATION
  Report Type: Spontaneous
  Country: US (occurrence: None)
  Receive Date: 20140909
  Receipt Date: 20140909
  Transmission Date: 20150326
  Serious: Yes (Other)
  Sender: FDA-Public Use
  Company Number: None

PATIENT
  Age: 13 Year
  Sex: Male
  Weight: 45.81 kg

DRUGS (2)
  1. TRILEPTAL [Suspect]
     Active Substance: OXCARBAZEPINE
     Indication: PRODUCT USED FOR UNKNOWN INDICATION
     Route: 048
     Dates: start: 201312, end: 2014
  2. TRILEPTAL [Suspect]
     Active Substance: OXCARBAZEPINE
     Indication: PRODUCT USED FOR UNKNOWN INDICATION
     Dates: start: 201312, end: 201401

REACTIONS (5)
  - Product substitution issue [None]
  - Convulsion [None]
  - Quality of life decreased [None]
  - Abnormal behaviour [None]
  - Therapeutic response changed [None]

NARRATIVE: CASE EVENT DATE: 20140117
